FAERS Safety Report 25160375 (Version 2)
Quarter: 2025Q2

REPORT INFORMATION
  Report Type: Report from Study
  Country: CO (occurrence: CO)
  Receive Date: 20250404
  Receipt Date: 20250602
  Transmission Date: 20250717
  Serious: Yes (Other)
  Sender: REGENERON
  Company Number: CO-BAYER-2025A044636

PATIENT
  Age: 78 Year
  Sex: Female

DRUGS (6)
  1. EYLEA [Suspect]
     Active Substance: AFLIBERCEPT
     Indication: Neovascular age-related macular degeneration
     Dates: start: 20210719, end: 20210719
  2. EYLEA [Suspect]
     Active Substance: AFLIBERCEPT
     Dates: start: 20241118, end: 20241118
  3. HYALURONATE SODIUM [Concomitant]
     Active Substance: HYALURONATE SODIUM
     Indication: Dry eye
  4. ANTIBIOTIC [CHLORAMPHENICOL] [Concomitant]
     Indication: Product used for unknown indication
  5. SOPHIXIN OFTENO [Concomitant]
     Indication: Product used for unknown indication
  6. DEXAMETHASONE [Concomitant]
     Active Substance: DEXAMETHASONE
     Indication: Product used for unknown indication

REACTIONS (6)
  - Eye disorder [Not Recovered/Not Resolved]
  - Neovascular age-related macular degeneration [Unknown]
  - Cataract operation [Unknown]
  - Visual impairment [Unknown]
  - Drug resistance [Unknown]
  - Drug effect less than expected [Unknown]

NARRATIVE: CASE EVENT DATE: 20250506
